FAERS Safety Report 4480905-6 (Version None)
Quarter: 2004Q4

REPORT INFORMATION
  Report Type: 
  Country: None (occurrence: None)
  Receive Date: 20041019
  Receipt Date: 20041011
  Transmission Date: 20050328
  Serious: Yes (Death)
  Sender: FDA-Public Use
  Company Number: 2004UW21215

PATIENT
  Age: 43 Year
  Sex: Male

DRUGS (1)
  1. SEROQUEL [Suspect]
     Dosage: 1500 MG DAILY PO
     Route: 048

REACTIONS (2)
  - COMPLETED SUICIDE [None]
  - PRESCRIBED OVERDOSE [None]
